FAERS Safety Report 12840975 (Version 2)
Quarter: 2016Q4

REPORT INFORMATION
  Report Type: Report from Study
  Country: ES (occurrence: ES)
  Receive Date: 20161012
  Receipt Date: 20161019
  Transmission Date: 20170207
  Serious: Yes (Hospitalization)
  Sender: FDA-Public Use
  Company Number: ES-B.I. PHARMACEUTICALS,INC./RIDGEFIELD-2016-BI-20473BI

PATIENT
  Age: 81 Year
  Sex: Male
  Weight: 83.4 kg

DRUGS (25)
  1. ARTEDIL [Concomitant]
     Indication: HYPERTENSION
     Route: 048
     Dates: start: 20120802, end: 20160404
  2. PARACETAMOL [Concomitant]
     Active Substance: ACETAMINOPHEN
     Dosage: STRENGTH: 1G
     Route: 065
  3. TRANSTEC [Concomitant]
     Active Substance: BUPRENORPHINE
     Indication: SPINAL OSTEOARTHRITIS
     Dosage: STRTENGTH:35 MCG/ HOUR, DAILY DOSE: 1 PARXE/ 72 HOURS
     Route: 062
     Dates: start: 20140721
  4. BILINA COLIRI [Concomitant]
     Indication: DRY EYE
     Dosage: FORMULATION:OCULAR.
     Route: 050
     Dates: start: 20130715
  5. ZYLORIC [Concomitant]
     Active Substance: ALLOPURINOL
     Indication: HYPERURICAEMIA
     Dosage: STRENGTH: 300MG
     Route: 048
     Dates: start: 20010622
  6. PARACETAMOL [Concomitant]
     Active Substance: ACETAMINOPHEN
     Indication: SPINAL OSTEOARTHRITIS
     Dosage: STRENGTH: 16G
     Route: 048
     Dates: start: 20110628
  7. FOSTER [Concomitant]
     Active Substance: BECLOMETHASONE\FORMOTEROL
     Indication: SLEEP APNOEA SYNDROME
     Dosage: STRENGTH: 10/6 MCG
     Route: 055
     Dates: start: 20120411
  8. DOXAZOSIN [Concomitant]
     Active Substance: DOXAZOSIN\DOXAZOSIN MESYLATE
     Indication: PRODUCT USED FOR UNKNOWN INDICATION
     Route: 065
  9. DIAZEPAM. [Concomitant]
     Active Substance: DIAZEPAM
     Indication: INSOMNIA
     Route: 048
     Dates: start: 20051220, end: 20160404
  10. FUROSEMIDE. [Concomitant]
     Active Substance: FUROSEMIDE
     Indication: PRODUCT USED FOR UNKNOWN INDICATION
     Route: 065
  11. ATROALDO [Concomitant]
     Indication: PRODUCT USED FOR UNKNOWN INDICATION
     Route: 065
  12. CARVEDILOL. [Concomitant]
     Active Substance: CARVEDILOL
     Indication: HYPERTENSION
     Route: 048
     Dates: start: 20120810
  13. DOXAZOSINA NEO [Concomitant]
     Indication: HYPERTENSION
     Route: 048
     Dates: start: 20010625, end: 20160404
  14. OMEPRAZOL [Concomitant]
     Active Substance: OMEPRAZOLE
     Indication: PROPHYLAXIS
     Route: 048
     Dates: start: 20110726
  15. DIAZEPAM. [Concomitant]
     Active Substance: DIAZEPAM
     Route: 065
  16. COLCHIMAX [Concomitant]
     Active Substance: COLCHICINE\DICYCLOMINE HYDROCHLORIDE
     Indication: HYPERURICAEMIA
     Route: 048
     Dates: start: 20121019, end: 20160404
  17. ATROVENT [Concomitant]
     Active Substance: IPRATROPIUM BROMIDE
     Indication: SLEEP APNOEA SYNDROME
     Dosage: STRENGTH: 20 MCG/INHALATION
     Route: 055
     Dates: start: 20111223
  18. REPAGLINIDA [Concomitant]
     Indication: TYPE 2 DIABETES MELLITUS
     Dosage: STRENGTH: 1 MG
     Route: 048
     Dates: start: 20150819, end: 20160404
  19. ADIRO [Concomitant]
     Active Substance: ASPIRIN
     Indication: CARDIOVASCULAR EVENT PROPHYLAXIS
     Route: 065
     Dates: start: 20051129
  20. BLINDED LINAGLIPTIN [Suspect]
     Active Substance: LINAGLIPTIN
     Indication: TYPE 2 DIABETES MELLITUS
     Route: 048
     Dates: start: 20140819, end: 20160118
  21. SERC [Concomitant]
     Active Substance: BETAHISTINE HYDROCHLORIDE
     Indication: AFFECT LABILITY
     Route: 048
     Dates: start: 20120712, end: 20160404
  22. TOVIAZ [Concomitant]
     Active Substance: FESOTERODINE FUMARATE
     Indication: PROSTATIC ADENOMA
     Route: 048
     Dates: start: 20110126
  23. FUROSEMIDA [Concomitant]
     Active Substance: FUROSEMIDE
     Indication: CARDIAC DISORDER
     Dosage: STRENGTH: 40MG
     Route: 048
     Dates: start: 20010622
  24. REPAGLINIDA [Concomitant]
     Route: 048
     Dates: start: 20160404
  25. SIMVASTATINA [Concomitant]
     Active Substance: SIMVASTATIN
     Indication: CARDIOVASCULAR EVENT PROPHYLAXIS
     Route: 048
     Dates: start: 20120928, end: 20160404

REACTIONS (5)
  - Systolic dysfunction [Recovered/Resolved]
  - Chronic kidney disease [Recovered/Resolved]
  - Pneumonia [Recovered/Resolved]
  - Urinary retention [Not Recovered/Not Resolved]
  - Respiratory tract infection [Recovered/Resolved]

NARRATIVE: CASE EVENT DATE: 20160118
